FAERS Safety Report 17461213 (Version 1)
Quarter: 2020Q1

REPORT INFORMATION
  Report Type: Spontaneous
  Country: US (occurrence: US)
  Receive Date: 20200226
  Receipt Date: 20200226
  Transmission Date: 20200409
  Serious: Yes (Hospitalization)
  Sender: FDA-Public Use
  Company Number: None

PATIENT
  Age: 69 Year
  Sex: Male
  Weight: 93 kg

DRUGS (1)
  1. HYDROXYUREA. [Suspect]
     Active Substance: HYDROXYUREA
     Indication: THROMBOCYTOSIS
     Route: 048
     Dates: start: 20191211, end: 20200211

REACTIONS (3)
  - Pneumonia [None]
  - Pyrexia [None]
  - Weight decreased [None]

NARRATIVE: CASE EVENT DATE: 20200210
